FAERS Safety Report 5237830-2 (Version None)
Quarter: 2007Q1

REPORT INFORMATION
  Report Type: 
  Country: None (occurrence: None)
  Receive Date: 20070214
  Receipt Date: 20070201
  Transmission Date: 20070707
  Serious: Yes (Hospitalization)
  Sender: FDA-Public Use
  Company Number: US-ELI_LILLY_AND_COMPANY-US200701001320

PATIENT
  Age: 77 Year
  Sex: Female

DRUGS (2)
  1. FORTEO [Suspect]
     Dosage: UNK D/F, UNK
     Dates: start: 20060501, end: 20061201
  2. FORTEO [Suspect]
     Dosage: UNK D/F, UNK

REACTIONS (5)
  - BLOOD POTASSIUM DECREASED [None]
  - COLITIS [None]
  - EATING DISORDER [None]
  - HIATUS HERNIA [None]
  - RECTAL HAEMORRHAGE [None]
